FAERS Safety Report 5720255-0 (Version None)
Quarter: 2008Q2

REPORT INFORMATION
  Report Type: 
  Country: None (occurrence: None)
  Receive Date: 20080428
  Receipt Date: 20080417
  Transmission Date: 20081010
  Serious: Yes (Other)
  Sender: FDA-Public Use
  Company Number: US-PFIZER INC-2008034566

PATIENT
  Sex: Female
  Weight: 63.5 kg

DRUGS (9)
  1. SERTRALINE HYDROCHLORIDE [Suspect]
     Indication: BIPOLAR DISORDER
     Dosage: DAILY DOSE:100MG-TEXT:DAILY
  2. DEPAKOTE [Concomitant]
  3. DEPAKOTE [Concomitant]
  4. KLONOPIN [Concomitant]
  5. KLONOPIN [Concomitant]
  6. AMBIEN [Concomitant]
  7. AMBIEN [Concomitant]
  8. IBANDRONATE SODIUM [Concomitant]
  9. IBANDRONATE SODIUM [Concomitant]

REACTIONS (7)
  - FIBROMYALGIA [None]
  - JOINT ARTHROPLASTY [None]
  - JOINT INJURY [None]
  - KNEE OPERATION [None]
  - NECK PAIN [None]
  - OSTEOARTHRITIS [None]
  - PAIN IN EXTREMITY [None]
